FAERS Safety Report 19928107 (Version 1)
Quarter: 2021Q4

REPORT INFORMATION
  Report Type: Spontaneous
  Country: US (occurrence: US)
  Receive Date: 20211007
  Receipt Date: 20211007
  Transmission Date: 20220303
  Serious: No
  Sender: FDA-Public Use
  Company Number: US-BAYER-2021A225541

PATIENT

DRUGS (1)
  1. CLARITIN LIQUI-GELS [Suspect]
     Active Substance: LORATADINE
     Dosage: 1 DF
     Route: 048

REACTIONS (1)
  - Epistaxis [Unknown]
